FAERS Safety Report 8152085 (Version 3)
Quarter: 2013Q1

REPORT INFORMATION
  Report Type: Spontaneous
  Country: US (occurrence: US)
  Receive Date: 20110922
  Receipt Date: 20130214
  Transmission Date: 20140127
  Serious: Yes (Other)
  Sender: FDA-Public Use
  Company Number: US-ASTRAZENECA-2011SE12471

PATIENT
  Sex: Female

DRUGS (27)
  1. SEROQUEL [Suspect]
     Dosage: 25 MG TO 400 MG TAKE 2 TABLETS IN THE MORNING AND NIGHT AND ONE AT NOON
     Route: 048
     Dates: start: 20010430
  2. SEROQUEL [Suspect]
     Route: 048
     Dates: start: 20090326
  3. FUROSEMIDE [Concomitant]
     Route: 048
     Dates: start: 20010430
  4. EFFEXOR XR [Concomitant]
     Route: 048
     Dates: start: 20010430
  5. SERZONE [Concomitant]
     Route: 048
     Dates: start: 20010430
  6. REMERON [Concomitant]
     Route: 048
     Dates: start: 20010430
  7. BENZTROPINE [Concomitant]
     Dosage: 0.5 MG TAKE ONE TABLET BY MOUTH TWICE A DAY AND 1 TABLET DAILY AS NEEDED
     Route: 048
     Dates: start: 20010430
  8. RISPERDAL [Concomitant]
     Route: 048
     Dates: start: 20010430
  9. BUSPAR [Concomitant]
     Route: 048
     Dates: start: 20010430
  10. EVISTA [Concomitant]
     Dates: start: 20080122
  11. EVISTA [Concomitant]
     Dates: start: 20090416
  12. CLONAZEPAM [Concomitant]
     Dates: start: 20080125
  13. CLONAZEPAM [Concomitant]
     Dates: start: 20090416
  14. PRAVASTATIN SODIUM [Concomitant]
     Dates: start: 20080125
  15. PRAVASTATIN SODIUM [Concomitant]
     Dates: start: 20090416
  16. LISINOPRIL [Concomitant]
     Dates: start: 20080129
  17. AZITHROMYCIN [Concomitant]
     Dates: start: 20080214
  18. AZITHROMYCIN [Concomitant]
     Dates: start: 20090420
  19. LEXAPRO [Concomitant]
     Dates: start: 20080228
  20. LEXAPRO [Concomitant]
     Dates: start: 20090326
  21. HYDROCODONE ST/APAP [Concomitant]
     Dosage: 5/500 MG TAB
     Dates: start: 20080125
  22. HYDROCODONE ST/APAP [Concomitant]
     Dosage: 5/500 MG TAB
     Dates: start: 20090331
  23. TOPROL XL [Concomitant]
     Dates: start: 20090320
  24. FLUDROCORTISONE ACETATE [Concomitant]
     Dates: start: 20090326
  25. CHLOPROMAZINE HCL [Concomitant]
     Dates: start: 20090402
  26. SYMBICORT [Concomitant]
     Dosage: 160/4.5,UNKNOWN
     Route: 055
     Dates: start: 20090417
  27. PREDNISONE [Concomitant]
     Dates: start: 20090420

REACTIONS (3)
  - Diabetic coma [Unknown]
  - Pancreatitis [Unknown]
  - Type 2 diabetes mellitus [Unknown]
